FAERS Safety Report 4377748-0 (Version None)
Quarter: 2004Q2

REPORT INFORMATION
  Report Type: 
  Country: None (occurrence: None)
  Receive Date: 20040615
  Receipt Date: 20011005
  Transmission Date: 20050107
  Serious: Yes (Hospitalization, Disabling, Other)
  Sender: FDA-Public Use
  Company Number: US-MERCK-01100930

PATIENT
  Age: 73 Year
  Sex: Female

DRUGS (6)
  1. [THERAPY UNSPECIFIED] [Concomitant]
     Route: 065
  2. TYLENOL [Concomitant]
     Route: 065
  3. CALCIUM CARBONATE [Concomitant]
     Route: 065
  4. METHOCARBAMOL [Concomitant]
     Route: 065
  5. ZOCOR [Suspect]
     Indication: HYPERLIPIDAEMIA
     Route: 048
     Dates: start: 20000321, end: 20000608
  6. VERAPAMIL MSD LP [Suspect]
     Route: 065

REACTIONS (5)
  - BLADDER SPASM [None]
  - KERATOCONJUNCTIVITIS SICCA [None]
  - MYALGIA [None]
  - RENAL FAILURE [None]
  - URETHRAL STRICTURE [None]
